FAERS Safety Report 16528003 (Version 2)
Quarter: 2019Q4

REPORT INFORMATION
  Report Type: Report from Study
  Country: JP (occurrence: JP)
  Receive Date: 20190704
  Receipt Date: 20191108
  Transmission Date: 20200122
  Serious: No
  Sender: FDA-Public Use
  Company Number: JP-ACTELION-A-CH2018-184055

PATIENT
  Sex: Female
  Weight: 36.6 kg

DRUGS (13)
  1. NAUZELIN [Concomitant]
     Active Substance: DOMPERIDONE
     Indication: MEGACOLON
     Dosage: 30 MG, QD
     Dates: start: 20150512
  2. BAYASPIRIN [Concomitant]
     Active Substance: ASPIRIN
     Dosage: 100 MG, QD
     Dates: start: 20171227
  3. JUVELA N [Concomitant]
     Active Substance: TOCOPHERYL NICOTINATE, D-.ALPHA.
     Dosage: 600 MG, QD
     Dates: start: 20150512
  4. BERAPROST NA [Concomitant]
     Active Substance: BERAPROST SODIUM
     Indication: PULMONARY ARTERIAL HYPERTENSION
     Dosage: 60 ?G, QD
     Dates: start: 20150512
  5. MIYA-BM [Concomitant]
     Active Substance: CLOSTRIDIUM BUTYRICUM SPORES STRAIN M-55
     Indication: MEGACOLON
     Dosage: 3 G, QD
     Dates: start: 20171227
  6. UPTRAVI [Suspect]
     Active Substance: SELEXIPAG
     Indication: PULMONARY ARTERIAL HYPERTENSION
     Dosage: 0.4 MG, BID
     Route: 048
     Dates: start: 20171213, end: 20180105
  7. AMLODIPINE [Concomitant]
     Active Substance: AMLODIPINE BESYLATE
     Dosage: 2.5 MG, QD
     Dates: start: 20171227
  8. FERROMIA [Concomitant]
     Active Substance: SODIUM FERROUS CITRATE
     Indication: IRON DEFICIENCY ANAEMIA
     Dosage: 50 MG, QD
     Dates: start: 20150902
  9. CEREKINON [Concomitant]
     Active Substance: TRIMEBUTINE
     Indication: MEGACOLON
     Dosage: 300 MG, QD
     Dates: start: 20170221
  10. NEXIUM [Concomitant]
     Active Substance: ESOMEPRAZOLE MAGNESIUM
     Dosage: 10 MG, QD
     Dates: start: 20150602
  11. GASCON [Concomitant]
     Active Substance: DIMETHICONE
     Indication: MEGACOLON
     Dosage: 120 MG, QD
     Dates: start: 20161108
  12. CANDESARTAN. [Concomitant]
     Active Substance: CANDESARTAN
     Indication: HYPERTENSION
     Dosage: 4 MG, QD
     Dates: start: 20171227
  13. OPSUMIT [Concomitant]
     Active Substance: MACITENTAN
     Indication: PULMONARY ARTERIAL HYPERTENSION
     Dosage: 10 MG, QD
     Dates: start: 20160809

REACTIONS (1)
  - Interstitial lung disease [Recovering/Resolving]
